FAERS Safety Report 8327615-2 (Version None)
Quarter: 2012Q2

REPORT INFORMATION
  Report Type: 
  Country: None (occurrence: None)
  Receive Date: 20120502
  Receipt Date: 20120423
  Transmission Date: 20120825
  Serious: Yes (Hospitalization, Other)
  Sender: FDA-Public Use
  Company Number: US-BAYER-201023058NA

PATIENT
  Age: 16 Year
  Sex: Female
  Weight: 56.689 kg

DRUGS (28)
  1. ALBUTEROL [Concomitant]
     Indication: ASTHMA
     Dosage: UNK UNK, PRN
     Route: 055
  2. TRAZODONE HCL [Concomitant]
  3. FENTANYL-100 [Concomitant]
     Route: 041
  4. PHENERGAN [Concomitant]
  5. YAZ [Suspect]
     Indication: PRODUCT USED FOR UNKNOWN INDICATION
     Route: 048
     Dates: start: 20050401, end: 20070215
  6. ANTIBIOTICS [Concomitant]
     Dosage: UNK UNK, PRN
  7. ASPIRIN [Concomitant]
  8. IBUPROFEN [Concomitant]
  9. YASMIN [Suspect]
     Indication: ACNE
     Dosage: UNK
     Dates: start: 20050401, end: 20070216
  10. ZOLOFT [Concomitant]
  11. MS CONTIN [Concomitant]
  12. DROPERIDOL [Concomitant]
     Route: 041
  13. PERCOCET [Concomitant]
  14. ACETAMINOPHEN [Concomitant]
  15. ZOFRAN [Concomitant]
     Dosage: 4 MG, UNK
     Route: 041
  16. MORPHINE [Concomitant]
     Dosage: 4 MG, UNK
     Route: 041
  17. NSAID'S [Concomitant]
     Dosage: UNK UNK, PRN
  18. PROZAC [Concomitant]
     Dosage: 10 MG, QD
  19. LOVENOX [Concomitant]
     Dosage: UNK
  20. RESTORIL [Concomitant]
  21. TEMAZEPAM [Concomitant]
  22. MECLIZINE [Concomitant]
  23. ADVAIR DISKUS 100/50 [Concomitant]
  24. LORAZEPAM [Concomitant]
  25. ATIVAN [Concomitant]
     Dosage: 0.5 MG, UNK
     Route: 048
  26. ALBUTEROL [Concomitant]
     Dosage: 2 PUFF(S), PRN
     Route: 055
     Dates: start: 20071111
  27. ANTIMIGRAINE PREPARATIONS [Concomitant]
     Indication: MIGRAINE
     Dosage: UNK UNK, PRN
  28. OXYCONTIN [Concomitant]

REACTIONS (2)
  - PULMONARY EMBOLISM [None]
  - PAIN [None]
